FAERS Safety Report 20533151 (Version 1)
Quarter: 2022Q1

REPORT INFORMATION
  Report Type: Spontaneous
  Country: IT (occurrence: IT)
  Receive Date: 20220301
  Receipt Date: 20220301
  Transmission Date: 20220423
  Serious: Yes (Other)
  Sender: FDA-Public Use
  Company Number: IT-ABBVIE-22K-083-4295690-00

PATIENT
  Age: 50 Year
  Sex: Female

DRUGS (9)
  1. VALPROIC ACID [Suspect]
     Active Substance: VALPROIC ACID
     Indication: Product used for unknown indication
     Route: 065
  2. VALPROIC ACID [Suspect]
     Active Substance: VALPROIC ACID
     Route: 065
     Dates: start: 20190628
  3. LORAZEPAM [Suspect]
     Active Substance: LORAZEPAM
     Indication: Psychotic disorder
     Route: 048
     Dates: start: 20190628, end: 20190708
  4. URSODIOL [Suspect]
     Active Substance: URSODIOL
     Indication: Product used for unknown indication
     Route: 048
  5. HYDROXYZINE [Suspect]
     Active Substance: HYDROXYZINE HYDROCHLORIDE
     Indication: Insomnia
     Dosage: IN THE EVENING
     Route: 065
  6. HYDROXYZINE [Suspect]
     Active Substance: HYDROXYZINE HYDROCHLORIDE
     Route: 065
  7. CARIPRAZINE [Suspect]
     Active Substance: CARIPRAZINE
     Indication: Psychotic disorder
     Route: 048
     Dates: start: 20190629, end: 20190708
  8. CARIPRAZINE [Suspect]
     Active Substance: CARIPRAZINE
     Indication: Schizophrenia
     Route: 048
     Dates: start: 20190630, end: 2019
  9. CARIPRAZINE [Suspect]
     Active Substance: CARIPRAZINE
     Route: 048
     Dates: start: 20190701

REACTIONS (2)
  - Neutropenia [Not Recovered/Not Resolved]
  - Leukopenia [Not Recovered/Not Resolved]
